FAERS Safety Report 9120787 (Version 1)
Quarter: 2013Q1

REPORT INFORMATION
  Report Type: Report from Study
  Country: DE (occurrence: DE)
  Receive Date: 20130226
  Receipt Date: 20130226
  Transmission Date: 20140127
  Serious: Yes (Hospitalization)
  Sender: FDA-Public Use
  Company Number: DE-PFIZER INC-2013060082

PATIENT
  Age: 74 Year
  Sex: Female

DRUGS (15)
  1. CISPLATIN [Suspect]
     Indication: METASTATIC GASTRIC CANCER
     Dosage: 80 MG/M2, 1 IN 21 D (CYCLE 3 STARTED ON 11MAY2012)
     Route: 041
     Dates: start: 20120327
  2. 5-FU [Suspect]
     Indication: METASTATIC GASTRIC CANCER
     Dosage: 4000 MG/M2 , 1 I N 21 D (CYCLE 3 STARTED ON 11MAY2012)
     Route: 041
     Dates: start: 20120327
  3. PANTOZOL [Concomitant]
     Indication: PROPHYLAXIS OF NAUSEA AND VOMITING
     Dosage: 40MG, UNK
     Dates: start: 20120307
  4. ASS [Concomitant]
     Indication: PROPHYLAXIS
     Dosage: 100MG, UNK
     Dates: start: 20120307
  5. DILTIAZEM [Concomitant]
     Indication: HYPERTENSION
     Dosage: AS NEEDED.
     Dates: start: 20120307
  6. INDAPAMID [Concomitant]
     Indication: HYPERTENSION
     Dosage: AS NEEDED
     Dates: start: 20120307
  7. L-THYROXIN [Concomitant]
     Indication: PROPHYLAXIS
     Dosage: UNK
     Dates: start: 2002
  8. INSUMAN RAPID [Concomitant]
     Indication: DIABETES MELLITUS
     Dosage: AS NEEDED
     Dates: start: 2012
  9. LANTUS [Concomitant]
     Indication: DIABETES MELLITUS
     Dosage: AS NEEDED
     Dates: start: 2012
  10. TRAMAL [Concomitant]
     Indication: PAIN PROPHYLAXIS
     Dosage: UNK
     Dates: start: 20120307
  11. MOVICOL [Concomitant]
     Indication: CONSTIPATION PROPHYLAXIS
     Dosage: UNK
     Dates: start: 20120307
  12. NOVALGIN [Concomitant]
     Indication: PAIN PROPHYLAXIS
     Dosage: UNK
     Dates: start: 20120510
  13. MCP [Concomitant]
     Indication: PROPHYLAXIS OF NAUSEA AND VOMITING
     Dosage: UNK
     Dates: start: 20120510
  14. VOMEX A [Concomitant]
     Indication: PROPHYLAXIS OF NAUSEA AND VOMITING
     Dosage: UNK
     Dates: start: 20120510
  15. IBUPROFEN [Concomitant]
     Indication: PAIN PROPHYLAXIS
     Dosage: UNK
     Dates: start: 20120420

REACTIONS (1)
  - General physical health deterioration [Not Recovered/Not Resolved]
